FAERS Safety Report 8809122 (Version 1)
Quarter: 2012Q4

REPORT INFORMATION
  Report Type: Spontaneous
  Country: DK (occurrence: None)
  Receive Date: 20120920
  Receipt Date: 20120920
  Transmission Date: 20130627
  Serious: Yes (Other)
  Sender: FDA-Public Use
  Company Number: 2012MA011287

PATIENT
  Age: 77 Year
  Sex: Female

DRUGS (2)
  1. METFORMIN HYDROCHLORIDE [Suspect]
     Route: 048
     Dates: start: 2011
  2. CONTRAST MEDIA [Suspect]
     Route: 042
     Dates: start: 201202, end: 201202

REACTIONS (2)
  - Renal failure acute [None]
  - Drug interaction [None]
